FAERS Safety Report 24651344 (Version 1)
Quarter: 2024Q4

REPORT INFORMATION
  Report Type: Spontaneous
  Country: RO (occurrence: RO)
  Receive Date: 20241122
  Receipt Date: 20241122
  Transmission Date: 20250115
  Serious: Yes (Other)
  Sender: ACCORD
  Company Number: RO-Accord-137798

PATIENT
  Age: 40 Year
  Sex: Male

DRUGS (3)
  1. IRINOTECAN HYDROCHLORIDE [Suspect]
     Active Substance: IRINOTECAN HYDROCHLORIDE
     Indication: Rectal adenocarcinoma
     Dosage: IN DOSE OF 65 MG/MP
  2. CAPECITABINE [Suspect]
     Active Substance: CAPECITABINE
     Indication: Rectal adenocarcinoma
     Dosage: PART OF CAPOX REGIMEN/NEOADJUVANT CHEMOTHERAPY, 1 CYCLE
  3. OXALIPLATIN [Suspect]
     Active Substance: OXALIPLATIN
     Indication: Rectal adenocarcinoma
     Dosage: PART OF CAPOX REGIMEN

REACTIONS (4)
  - Chest pain [Unknown]
  - Diarrhoea [Unknown]
  - Cardiotoxicity [Unknown]
  - Therapeutic product effect incomplete [Unknown]
